FAERS Safety Report 8210565-X (Version None)
Quarter: 2012Q1

REPORT INFORMATION
  Report Type: 
  Country: None (occurrence: None)
  Receive Date: 20120314
  Receipt Date: 20110525
  Transmission Date: 20120608
  Serious: No
  Sender: FDA-Public Use
  Company Number: US-ASTRAZENECA-2011SE32457

PATIENT
  Age: 45 Year
  Sex: Female

DRUGS (3)
  1. TOPROL-XL [Suspect]
     Route: 048
  2. CRESTOR [Concomitant]
  3. SEROQUEL [Concomitant]

REACTIONS (3)
  - EPISTAXIS [None]
  - SINUSITIS [None]
  - SWELLING FACE [None]
